FAERS Safety Report 9431989 (Version 1)
Quarter: 2013Q3

REPORT INFORMATION
  Report Type: Other
  Country: GB (occurrence: GB)
  Receive Date: 20130731
  Receipt Date: 20130731
  Transmission Date: 20140515
  Serious: Yes (Other)
  Sender: FDA-Public Use
  Company Number: GB-TARO PHARMACEUTICALS U.S.A., INC-2013SUN01094

PATIENT
  Age: 44 Year
  Sex: Female
  Weight: 88 kg

DRUGS (4)
  1. WARFARIN [Suspect]
     Indication: PRODUCT USED FOR UNKNOWN INDICATION
     Dosage: UNK
     Route: 048
     Dates: start: 201206
  2. PROSTAP [Interacting]
     Indication: UTERINE LEIOMYOMA
     Dosage: 3.75 MG, MONTHLY
     Route: 030
     Dates: start: 20130503
  3. PROSTAP [Interacting]
     Indication: VAGINAL HAEMORRHAGE
  4. HYDROXOCOBALAMIN [Concomitant]
     Dosage: 1 MG, UNK
     Route: 030
     Dates: start: 201306

REACTIONS (2)
  - Drug interaction [Not Recovered/Not Resolved]
  - International normalised ratio increased [Not Recovered/Not Resolved]
